FAERS Safety Report 8798428 (Version 1)
Quarter: 2012Q4

REPORT INFORMATION
  Report Type: 
  Country: US (occurrence: US)
  Receive Date: 20120920
  Receipt Date: 20120920
  Transmission Date: 20130627
  Serious: Yes (Life-Threatening)
  Sender: FDA-Public Use
  Company Number: US-COVIDIEN/TYCO HEALTHCARE/MALLINCKRODT-T201203431

PATIENT
  Age: 14 Month
  Sex: Male

DRUGS (3)
  1. ROXICODONE [Suspect]
     Dosage: UNK
     Dates: start: 201208
  2. IBUPROFEN [Suspect]
     Dosage: UNK
     Dates: start: 201208
  3. HYPNOTICS AND SEDATIVES [Suspect]
     Dosage: UNK
     Dates: start: 201208

REACTIONS (2)
  - Accidental exposure to product by child [Unknown]
  - Respiratory arrest [Unknown]
